FAERS Safety Report 18623511 (Version 1)
Quarter: 2020Q4

REPORT INFORMATION
  Report Type: Spontaneous
  Country: US (occurrence: US)
  Receive Date: 20201216
  Receipt Date: 20201216
  Transmission Date: 20210114
  Serious: Yes (Death)
  Sender: FDA-Public Use
  Company Number: None

PATIENT
  Age: 68 Year
  Sex: Male

DRUGS (9)
  1. MYCOPHENOLIC ACID DR [Suspect]
     Active Substance: MYCOPHENOLIC ACID
     Indication: RENAL TRANSPLANT
     Route: 048
     Dates: start: 20201011, end: 20201129
  2. NOVOLOG FLEXPEN U100 [Concomitant]
  3. VICTOZA 18MG PEN [Concomitant]
  4. ALLOPURINOL 100MG TAB [Concomitant]
     Active Substance: ALLOPURINOL
  5. LEVOTHYROXINE 50MCG TAB [Concomitant]
  6. LEVEMIR FLEXTOUCH U100 [Concomitant]
  7. CARVEDILOL 6.25MG TAB [Concomitant]
  8. PRAVASTATIN 10MG TAB [Concomitant]
  9. TACROLIMUS. [Suspect]
     Active Substance: TACROLIMUS
     Indication: RENAL TRANSPLANT
     Route: 048
     Dates: start: 20201011, end: 20201129

REACTIONS (1)
  - COVID-19 [None]

NARRATIVE: CASE EVENT DATE: 20201129
